FAERS Safety Report 8373681 (Version 2)
Quarter: 2013Q1

REPORT INFORMATION
  Report Type: Spontaneous
  Country: US (occurrence: US)
  Receive Date: 20120128
  Receipt Date: 20130129
  Transmission Date: 20140127
  Serious: No
  Sender: FDA-Public Use
  Company Number: US-ABBOTT-11P-163-0841479-00

PATIENT
  Sex: Female

DRUGS (5)
  1. HUMIRA 40 MG/0.8 ML PEN [Suspect]
     Indication: PSORIATIC ARTHROPATHY
  2. FOLIC ACID [Concomitant]
     Indication: PRODUCT USED FOR UNKNOWN INDICATION
  3. METHOTREXATE [Concomitant]
     Indication: PRODUCT USED FOR UNKNOWN INDICATION
     Dosage: X 4 PILLS WEEKLY
  4. DICLOFENAC [Concomitant]
     Indication: INFLAMMATION
  5. HCTZ [Concomitant]
     Indication: HYPERTENSION

REACTIONS (2)
  - Injection site pain [Not Recovered/Not Resolved]
  - Device malfunction [Recovered/Resolved]
